FAERS Safety Report 15963270 (Version 2)
Quarter: 2019Q1

REPORT INFORMATION
  Report Type: Spontaneous
  Country: US (occurrence: US)
  Receive Date: 20190214
  Receipt Date: 20190215
  Transmission Date: 20190417
  Serious: Yes (Other)
  Sender: FDA-Public Use
  Company Number: US-PFIZER INC-2019060140

PATIENT
  Age: 66 Year
  Sex: Male
  Weight: 94 kg

DRUGS (3)
  1. LIPITOR [Suspect]
     Active Substance: ATORVASTATIN CALCIUM
     Dosage: 40 MG, UNK
  2. LIPITOR [Suspect]
     Active Substance: ATORVASTATIN CALCIUM
     Dosage: 20 MG, UNK
  3. LIPITOR [Suspect]
     Active Substance: ATORVASTATIN CALCIUM
     Dosage: 80 MG, DAILY
     Route: 048
     Dates: start: 2017

REACTIONS (5)
  - Gait disturbance [Unknown]
  - Parkinson^s disease [Unknown]
  - Muscle rigidity [Unknown]
  - Movement disorder [Unknown]
  - Tremor [Unknown]

NARRATIVE: CASE EVENT DATE: 2018
